FAERS Safety Report 12656817 (Version 1)
Quarter: 2016Q3

REPORT INFORMATION
  Report Type: Spontaneous
  Country: US (occurrence: US)
  Receive Date: 20160816
  Receipt Date: 20160816
  Transmission Date: 20161109
  Serious: No
  Sender: FDA-Public Use
  Company Number: US-PERRIGO-16US014621

PATIENT
  Age: 71 Year
  Sex: Female
  Weight: 68.27 kg

DRUGS (5)
  1. LORATADINE. [Suspect]
     Active Substance: LORATADINE
     Indication: PERENNIAL ALLERGY
  2. LORATADINE. [Suspect]
     Active Substance: LORATADINE
     Indication: LACRIMATION INCREASED
  3. LORATADINE. [Suspect]
     Active Substance: LORATADINE
     Indication: SNEEZING
  4. LORATADINE. [Suspect]
     Active Substance: LORATADINE
     Indication: EYE PRURITUS
     Dosage: 10 MG, QD, PRN
     Route: 048
     Dates: start: 201603, end: 20160323
  5. SERTRALINE [Concomitant]
     Active Substance: SERTRALINE HYDROCHLORIDE
     Indication: DEPRESSION
     Dosage: UNK
     Route: 065

REACTIONS (3)
  - Fatigue [Recovered/Resolved]
  - Somnolence [Recovered/Resolved]
  - Depression [Recovered/Resolved]

NARRATIVE: CASE EVENT DATE: 20160317
